FAERS Safety Report 11249736 (Version 1)
Quarter: 2015Q3

REPORT INFORMATION
  Report Type: Spontaneous
  Country: US (occurrence: US)
  Receive Date: 20150708
  Receipt Date: 20150708
  Transmission Date: 20151125
  Serious: Yes (Other)
  Sender: FDA-Public Use
  Company Number: US-ELI_LILLY_AND_COMPANY-US200906004116

PATIENT
  Sex: Female

DRUGS (3)
  1. GEMZAR [Suspect]
     Active Substance: GEMCITABINE HYDROCHLORIDE
     Indication: LEIOMYOSARCOMA
     Dosage: 675 MG/M2, DAYS 1 AND 8
     Dates: start: 200812, end: 200812
  2. GEMZAR [Suspect]
     Active Substance: GEMCITABINE HYDROCHLORIDE
     Dosage: 675 MG/M2, DAYS 1 AND 8
     Dates: start: 200904
  3. TAXOTERE [Concomitant]
     Active Substance: DOCETAXEL
     Indication: LEIOMYOSARCOMA
     Dosage: 100 MG, DAY 8

REACTIONS (2)
  - Off label use [Unknown]
  - Febrile neutropenia [Unknown]

NARRATIVE: CASE EVENT DATE: 200812
